FAERS Safety Report 8139787-3 (Version None)
Quarter: 2012Q1

REPORT INFORMATION
  Report Type: 
  Country: None (occurrence: None)
  Receive Date: 20120215
  Receipt Date: 20120208
  Transmission Date: 20120608
  Serious: Yes (Other)
  Sender: FDA-Public Use
  Company Number: JP-ASTRAZENECA-2012SE09295

PATIENT
  Age: 48 Year
  Sex: Male
  Weight: 66 kg

DRUGS (3)
  1. DROPERIDOL [Concomitant]
     Indication: SEDATION
     Route: 042
  2. MARCAINE [Suspect]
     Indication: SPINAL ANAESTHESIA
     Route: 024
  3. DIAZEPAM [Concomitant]
     Indication: SEDATION
     Dosage: DOSE UNKNOWN
     Route: 042

REACTIONS (1)
  - ANAPHYLACTOID REACTION [None]
